FAERS Safety Report 19362982 (Version 1)
Quarter: 2021Q2

REPORT INFORMATION
  Report Type: Spontaneous
  Country: TR (occurrence: TR)
  Receive Date: 20210602
  Receipt Date: 20210602
  Transmission Date: 20210717
  Serious: Yes (Other)
  Sender: FDA-Public Use
  Company Number: TR-BRISTOL-MYERS SQUIBB COMPANY-BMS-2021-050211

PATIENT
  Age: 11 Year
  Sex: Male

DRUGS (1)
  1. ABATACEPT [Suspect]
     Active Substance: ABATACEPT
     Indication: DIARRHOEA
     Dosage: 10 MILLILITRE PER KILOGRAM, Q2WK
     Route: 065

REACTIONS (3)
  - Candida infection [Unknown]
  - Intentional product use issue [Unknown]
  - Pneumonia fungal [Unknown]
